FAERS Safety Report 4307325-9 (Version None)
Quarter: 2004Q1

REPORT INFORMATION
  Report Type: 
  Country: None (occurrence: None)
  Receive Date: 20040226
  Receipt Date: 20040212
  Transmission Date: 20041129
  Serious: Yes (Hospitalization)
  Sender: FDA-Public Use
  Company Number: 2003-BP-10772BP

PATIENT
  Age: 95 Year
  Sex: Female

DRUGS (11)
  1. CATAPRES [Suspect]
     Indication: HYPERTENSION
     Dosage: SEE IMAGE
     Route: 048
     Dates: start: 20031101, end: 20040101
  2. CATAPRES [Suspect]
     Indication: HYPERTENSION
     Dosage: SEE IMAGE
     Route: 048
     Dates: start: 20030101
  3. LASIX [Concomitant]
  4. PLAVIX [Concomitant]
  5. LOPRESSOR [Concomitant]
  6. ACETYLSALICYLIC ACID SRT [Concomitant]
  7. CARDIZEM [Concomitant]
  8. SYNHTHROID (LEVOTHYROXINE SODIUM) [Concomitant]
  9. VICODIN [Concomitant]
  10. DILANTIN [Concomitant]
  11. NORVASC [Concomitant]

REACTIONS (5)
  - BLOOD PRESSURE INCREASED [None]
  - CEREBROVASCULAR ACCIDENT [None]
  - CONVULSION [None]
  - INFECTION [None]
  - OEDEMA PERIPHERAL [None]
